FAERS Safety Report 8950572 (Version 1)
Quarter: 2012Q4

REPORT INFORMATION
  Report Type: Spontaneous
  Country: GB (occurrence: None)
  Receive Date: 20121127
  Receipt Date: 20121127
  Transmission Date: 20130627
  Serious: Yes (Hospitalization, Other)
  Sender: FDA-Public Use
  Company Number: GER/UKI/12/0026709

PATIENT
  Age: 2 Hour
  Sex: Male
  Weight: 2.43 kg

DRUGS (1)
  1. SERTRALIN [Suspect]
     Indication: DRUG USE FOR UNKNOWN INDICATION
     Route: 064

REACTIONS (6)
  - Grunting [None]
  - Hypertonia neonatal [None]
  - Tardive dyskinesia [None]
  - Dyskinesia [None]
  - Neonatal respiratory distress syndrome [None]
  - Maternal drugs affecting foetus [None]
